FAERS Safety Report 6468501-2 (Version None)
Quarter: 2009Q4

REPORT INFORMATION
  Report Type: 
  Country: None (occurrence: None)
  Receive Date: 20091203
  Receipt Date: 20091019
  Transmission Date: 20100525
  Serious: Yes (Hospitalization, Other)
  Sender: FDA-Public Use
  Company Number: IT-ELI_LILLY_AND_COMPANY-IT200910004831

PATIENT
  Age: 9 Year
  Sex: Female
  Weight: 24.6 kg

DRUGS (3)
  1. SOMATROPIN [Suspect]
     Indication: GROWTH HORMONE DEFICIENCY
     Dosage: 6 MG, WEEKLY (1/W)
  2. SOMATROPIN [Suspect]
     Dosage: 1.8 MG/KG, WEEKLY (1/W)
  3. SOMATROPIN [Suspect]
     Dosage: 6 MG/KG, WEEKLY (1/W)

REACTIONS (2)
  - INTRACRANIAL PRESSURE INCREASED [None]
  - METABOLIC ACIDOSIS [None]
